FAERS Safety Report 24068986 (Version 1)
Quarter: 2024Q3

REPORT INFORMATION
  Report Type: Report from Study
  Country: US (occurrence: US)
  Receive Date: 20240710
  Receipt Date: 20240710
  Transmission Date: 20241017
  Serious: No
  Sender: ROCHE
  Company Number: US-ROCHE-3485301

PATIENT
  Age: 60 Year
  Sex: Female

DRUGS (20)
  1. PHESGO [Suspect]
     Active Substance: HYALURONIDASE-ZZXF\PERTUZUMAB\TRASTUZUMAB
     Indication: Breast cancer female
     Dosage: DATE OF SERVICE: 19/NOV/2023 AT 600 MG/600MG.
     Route: 065
  2. PHESGO [Suspect]
     Active Substance: HYALURONIDASE-ZZXF\PERTUZUMAB\TRASTUZUMAB
     Indication: Oestrogen receptor assay positive
  3. B COMPLEX B12 [Concomitant]
  4. PROCHLORPERAZINE [Concomitant]
     Active Substance: PROCHLORPERAZINE
  5. DEXAMETHASONE [Concomitant]
     Active Substance: DEXAMETHASONE
  6. HYDROXYZINE [Concomitant]
     Active Substance: HYDROXYZINE HYDROCHLORIDE
  7. NYSTATIN [Concomitant]
     Active Substance: NYSTATIN
  8. OLANZAPINE [Concomitant]
     Active Substance: OLANZAPINE
  9. ONDANSETRON [Concomitant]
     Active Substance: ONDANSETRON
  10. POTASSIUM CHLORIDE [Concomitant]
     Active Substance: POTASSIUM CHLORIDE
  11. GABAPENTIN [Concomitant]
     Active Substance: GABAPENTIN
  12. HYDROCHLOROTHIAZIDE [Concomitant]
     Active Substance: HYDROCHLOROTHIAZIDE
  13. HYDROXYZINE [Concomitant]
     Active Substance: HYDROXYZINE HYDROCHLORIDE
  14. MONTELUKAST [Concomitant]
     Active Substance: MONTELUKAST SODIUM
  15. NORTRIPTYLINE [Concomitant]
     Active Substance: NORTRIPTYLINE
  16. PAROXETINE [Concomitant]
     Active Substance: PAROXETINE
  17. PROAIR HFA [Concomitant]
     Active Substance: ALBUTEROL SULFATE
  18. SIMVASTATIN [Concomitant]
     Active Substance: SIMVASTATIN
  19. TOPIRAMATE [Concomitant]
     Active Substance: TOPIRAMATE
  20. VICTOZA [Concomitant]
     Active Substance: LIRAGLUTIDE

REACTIONS (23)
  - Anaemia [Unknown]
  - Anxiety [Unknown]
  - Chronic obstructive pulmonary disease [Unknown]
  - Diabetes mellitus [Unknown]
  - Diarrhoea [Unknown]
  - Essential hypertension [Unknown]
  - Off label use [Unknown]
  - Hyperlipidaemia [Unknown]
  - Hypocalcaemia [Unknown]
  - Hypokalaemia [Unknown]
  - Iron deficiency anaemia [Unknown]
  - Dizziness [Unknown]
  - Haematuria [Unknown]
  - Neutropenia [Unknown]
  - Deficiency anaemia [Unknown]
  - Obstructive sleep apnoea syndrome [Unknown]
  - Pruritus [Unknown]
  - Urinary retention [Unknown]
  - Abdominal pain [Unknown]
  - Thrombocytopenia [Unknown]
  - Upper respiratory tract infection [Unknown]
  - Urinary tract infection [Unknown]
  - Vitamin D deficiency [Unknown]

NARRATIVE: CASE EVENT DATE: 20230623
